FAERS Safety Report 19202644 (Version 1)
Quarter: 2021Q2

REPORT INFORMATION
  Report Type: Spontaneous
  Country: GB (occurrence: GB)
  Receive Date: 20210502
  Receipt Date: 20210502
  Transmission Date: 20210717
  Serious: Yes (Hospitalization)
  Sender: FDA-Public Use
  Company Number: GB-JNJFOC-20210451928

PATIENT
  Age: 55 Year
  Sex: Female
  Weight: 74 kg

DRUGS (5)
  1. XARELTO [Suspect]
     Active Substance: RIVAROXABAN
     Indication: PRODUCT USED FOR UNKNOWN INDICATION
     Route: 048
  2. ALBUMIN [Concomitant]
     Active Substance: ALBUMIN HUMAN
  3. ATORVASTATIN [Concomitant]
     Active Substance: ATORVASTATIN
  4. ASTRAZENECA COVID?19 VACCINE [Suspect]
     Active Substance: AZD-1222
     Indication: PRODUCT USED FOR UNKNOWN INDICATION
     Dosage: DOSE 1
     Route: 065
     Dates: start: 20210303
  5. RAMIPRIL. [Concomitant]
     Active Substance: RAMIPRIL

REACTIONS (10)
  - Fatigue [Recovered/Resolved]
  - Skin reaction [Recovered/Resolved]
  - Ischaemic hepatitis [Recovered/Resolved]
  - Hepatitis [Recovering/Resolving]
  - Nephrolithiasis [Recovered/Resolved]
  - Hepatic vein thrombosis [Recovered/Resolved]
  - Hepatomegaly [Recovered/Resolved]
  - Hepatitis acute [Recovered/Resolved]
  - Transaminases abnormal [Recovered/Resolved]
  - Liver disorder [Recovered/Resolved]

NARRATIVE: CASE EVENT DATE: 20210313
